FAERS Safety Report 4411782-7 (Version None)
Quarter: 2004Q3

REPORT INFORMATION
  Report Type: 
  Country: None (occurrence: None)
  Receive Date: 20040729
  Receipt Date: 20040729
  Transmission Date: 20050211
  Serious: Yes (Other)
  Sender: FDA-Public Use
  Company Number: None

PATIENT
  Age: 58 Year
  Sex: Male
  Weight: 105.2345 kg

DRUGS (8)
  1. HYDROCODONE /APAP 5/500 MG TAB [Suspect]
     Indication: PAIN
     Dosage: 2 PRN Q 4-6 H PO
     Route: 048
     Dates: start: 20040701
  2. SODIUM CHLORIDE INJ [Concomitant]
  3. TENORMIN [Concomitant]
  4. VASOTEC [Concomitant]
  5. TORADOL [Concomitant]
  6. NORVASC [Concomitant]
  7. ORETIC [Concomitant]
  8. NUBAIN [Concomitant]

REACTIONS (3)
  - DRUG HYPERSENSITIVITY [None]
  - MEDICATION ERROR [None]
  - RASH [None]
